FAERS Safety Report 21170841 (Version 1)
Quarter: 2022Q3

REPORT INFORMATION
  Report Type: Spontaneous
  Country: CA (occurrence: CA)
  Receive Date: 20220804
  Receipt Date: 20220804
  Transmission Date: 20221027
  Serious: Yes (Hospitalization)
  Sender: FDA-Public Use
  Company Number: None

PATIENT
  Age: 60 Year
  Sex: Male
  Weight: 100 kg

DRUGS (35)
  1. METHOTREXATE [Suspect]
     Active Substance: METHOTREXATE
     Indication: Prophylaxis against graft versus host disease
  2. BUSULFAN [Suspect]
     Active Substance: BUSULFAN
     Indication: Acute myeloid leukaemia
  3. FLUDARABINE [Suspect]
     Active Substance: FLUDARABINE PHOSPHATE
     Indication: Acute myeloid leukaemia
  4. CYCLOSPORINE [Suspect]
     Active Substance: CYCLOSPORINE
     Indication: Prophylaxis against graft versus host disease
  5. ACETAMINOPHEN [Concomitant]
     Active Substance: ACETAMINOPHEN
  6. DEXAMETHASONE [Concomitant]
     Active Substance: DEXAMETHASONE
     Route: 065
  7. DIPHENHYDRAMINE [Concomitant]
     Active Substance: DIPHENHYDRAMINE
  8. ENOXAPARIN [Concomitant]
     Active Substance: ENOXAPARIN
  9. EPINEPHRINE [Concomitant]
     Active Substance: EPINEPHRINE
  10. FAMCICLOVIR [Concomitant]
     Active Substance: FAMCICLOVIR
  11. FAMOTIDINE [Concomitant]
     Active Substance: FAMOTIDINE
  12. FINASTERIDE [Concomitant]
     Active Substance: FINASTERIDE
  13. FLORINEF ACETATE [Concomitant]
     Active Substance: FLUDROCORTISONE ACETATE
  14. FLUCONAZOLE [Concomitant]
     Active Substance: FLUCONAZOLE
  15. HYDROMORPHONE [Concomitant]
     Active Substance: HYDROMORPHONE
  16. LEVOTHYROXINE [Concomitant]
     Active Substance: LEVOTHYROXINE
  17. LORAZEPAM [Concomitant]
     Active Substance: LORAZEPAM
     Route: 065
  18. MEPERIDINE [Concomitant]
     Active Substance: MEPERIDINE
  19. METHYLPREDNISOLONE SODIUM SUCCINATE [Concomitant]
     Active Substance: METHYLPREDNISOLONE SODIUM SUCCINATE
  20. METOCLOPRAMIDE [Concomitant]
     Active Substance: METOCLOPRAMIDE
  21. MORPHINE [Concomitant]
     Active Substance: MORPHINE
  22. ONDANSETRON [Concomitant]
     Active Substance: ONDANSETRON
  23. PANTOPRAZOLE [Concomitant]
     Active Substance: PANTOPRAZOLE
  24. PENTAMIDINE ISETHIONATE [Concomitant]
     Active Substance: PENTAMIDINE ISETHIONATE
     Dosage: 300 MG/VIAL BP
  25. PHENYTOIN [Concomitant]
     Active Substance: PHENYTOIN
  26. POLYETHYLENE GLYCOL [Concomitant]
     Active Substance: POLYETHYLENE GLYCOL
  27. PROCHLORPERAZINE [Concomitant]
     Active Substance: PROCHLORPERAZINE
  28. PSYLLIUM HUSK [Concomitant]
     Active Substance: PSYLLIUM HUSK
  29. RANITIDINE [Concomitant]
     Active Substance: RANITIDINE
  30. RAPAFLO [Concomitant]
     Active Substance: SILODOSIN
  31. SUCRALFATE [Concomitant]
     Active Substance: SUCRALFATE
  32. THYMOGLOBULIN [Concomitant]
     Active Substance: LAPINE T-LYMPHOCYTE IMMUNE GLOBULIN
     Dosage: POWDER FOR SOLUTION
     Route: 042
  33. TRIAMCINOLONE [Concomitant]
     Active Substance: TRIAMCINOLONE
  34. VANCOMYCIN [Concomitant]
     Active Substance: VANCOMYCIN
  35. VITAMIN D [Concomitant]
     Active Substance: VITAMIN D NOS

REACTIONS (1)
  - Febrile neutropenia [Recovered/Resolved]
